FAERS Safety Report 10139289 (Version 2)
Quarter: 2014Q2

REPORT INFORMATION
  Report Type: Spontaneous
  Country: CH (occurrence: CH)
  Receive Date: 20140429
  Receipt Date: 20140429
  Transmission Date: 20141212
  Serious: Yes (Hospitalization, Other)
  Sender: FDA-Public Use
  Company Number: CH-AMGEN-CHESP2014026658

PATIENT
  Age: 66 Year
  Sex: Female
  Weight: 64.7 kg

DRUGS (9)
  1. PROLIA [Suspect]
     Indication: OSTEOPOROSIS
     Dosage: 60 MG/ML, ONCE.
     Route: 058
     Dates: start: 20120703
  2. SERACTIL [Concomitant]
     Dosage: 400 MG, QD, 3 TABLETS
  3. ESOMEP                             /00661201/ [Concomitant]
     Dosage: 40 MG, 1 IN THE MORNING.
  4. COTENOLOL [Concomitant]
     Indication: HYPOAESTHESIA
     Dosage: UNK MUG, QD
     Dates: start: 2001
  5. MAGNESIUM CALCIUM [Concomitant]
     Dosage: 1 UNK, QD
  6. OMEGA 3 FISH OIL                   /01334101/ [Concomitant]
     Dosage: UNK UNK, QD
  7. TARGIN [Concomitant]
  8. FRAXIPARIN                         /00889603/ [Concomitant]
     Indication: THROMBOSIS PROPHYLAXIS
  9. XARELTO [Concomitant]
     Indication: THROMBOSIS PROPHYLAXIS

REACTIONS (12)
  - Osteonecrosis [Recovered/Resolved]
  - Osteoarthritis [Not Recovered/Not Resolved]
  - Uterine leiomyoma [Unknown]
  - Diverticulum intestinal [Unknown]
  - Procedural nausea [Recovering/Resolving]
  - Balance disorder [Unknown]
  - Groin pain [Not Recovered/Not Resolved]
  - Micturition urgency [Unknown]
  - Hypoaesthesia [Unknown]
  - Hypertension [Recovered/Resolved]
  - Middle insomnia [Unknown]
  - Pain in extremity [Not Recovered/Not Resolved]
